FAERS Safety Report 7295362-4 (Version None)
Quarter: 2011Q1

REPORT INFORMATION
  Report Type: 
  Country: None (occurrence: None)
  Receive Date: 20110207
  Receipt Date: 20110124
  Transmission Date: 20110831
  Serious: Yes (Hospitalization)
  Sender: FDA-Public Use
  Company Number: DSM-2011-00076

PATIENT
  Sex: Female

DRUGS (7)
  1. INEXIUM (ESOMEPRAZOLE MAGNESIUM) (40 MILLIGRAM, TABLET) (ESOMEPRAZOLE [Suspect]
     Indication: GASTROOESOPHAGEAL REFLUX DISEASE
     Dosage: 40 MG (40 MG,1 IN 1 D),ORAL
     Route: 048
     Dates: end: 20101115
  2. TOPAAL (MAGNESIUM CARBONATE, SILICA GEL, ALGINIC ACID, ALUMINUM HYDROX [Suspect]
     Indication: GASTROOESOPHAGEAL REFLUX DISEASE
     Dosage: ORAL
     Route: 048
     Dates: end: 20101115
  3. BIPERIDYS(DOMPERIDONE) (20 MILLIGRAM, TABLET) (DOMPERIDONE) [Suspect]
     Indication: GASTROOESOPHAGEAL REFLUX DISEASE
     Dosage: (20 MG),ORAL
     Route: 048
     Dates: end: 20101115
  4. OLMETEC (OLMESARTAN MEDOXOMIL) (40 MILLIGRAM, TABLET) (OLMESARTAN MEDO [Suspect]
     Indication: HYPERTENSION
     Dosage: 40 MG (40 MG, 1 IN 1 D),ORAL
     Route: 048
     Dates: end: 20101115
  5. LUDIOMIL (MAPROTILINE) (25 MILLIGRAM, TABLET) (MAPROTILINE) [Suspect]
     Indication: DEPRESSION
     Dosage: 25 MG (25 MG,1 IN 1 D),ORAL ; 75 MG (75 MG,1 IN 1 D),ORAL
     Route: 048
     Dates: start: 20100801, end: 20101115
  6. LUDIOMIL (MAPROTILINE) (25 MILLIGRAM, TABLET) (MAPROTILINE) [Suspect]
     Indication: DEPRESSION
     Dosage: 25 MG (25 MG,1 IN 1 D),ORAL ; 75 MG (75 MG,1 IN 1 D),ORAL
     Route: 048
     Dates: end: 20100801
  7. VITALOGINK (GINKGO BILOBA EXTRACT) (GINKGO BILOBA EXTRACT) [Suspect]
     Indication: PRODUCT USED FOR UNKNOWN INDICATION
     Dosage: ORAL
     Route: 048
     Dates: end: 20101115

REACTIONS (4)
  - FAECALOMA [None]
  - GASTROINTESTINAL DISORDER [None]
  - NAUSEA [None]
  - DEHYDRATION [None]
